FAERS Safety Report 6452826-0 (Version None)
Quarter: 2009Q4

REPORT INFORMATION
  Report Type: 
  Country: None (occurrence: None)
  Receive Date: 20091117
  Receipt Date: 20091027
  Transmission Date: 20100525
  Serious: Yes (Disabling, Other)
  Sender: FDA-Public Use
  Company Number: A20090723-002

PATIENT
  Age: 84 Year
  Sex: Female

DRUGS (8)
  1. PITAVASTATIN CALCIUM [Suspect]
     Indication: HYPERLIPIDAEMIA
     Dosage: 4MG PO
     Route: 048
     Dates: start: 20070401, end: 20090905
  2. BENIDIPINE HYDROCHLORIDE [Concomitant]
  3. TELMISARTAN [Concomitant]
  4. CARVEDILOL [Concomitant]
  5. CILOSTAZOL [Concomitant]
  6. FUROSEMIDE [Concomitant]
  7. GLIMEPIRIDE [Concomitant]
  8. VOGLIBOSE [Concomitant]

REACTIONS (10)
  - ALANINE AMINOTRANSFERASE INCREASED [None]
  - ANURIA [None]
  - ASPARTATE AMINOTRANSFERASE INCREASED [None]
  - CONDITION AGGRAVATED [None]
  - DEHYDRATION [None]
  - HAEMODIALYSIS [None]
  - HEPATIC FUNCTION ABNORMAL [None]
  - NUTRITIONAL CONDITION ABNORMAL [None]
  - RENAL FAILURE CHRONIC [None]
  - RHABDOMYOLYSIS [None]
